FAERS Safety Report 8957010 (Version 1)
Quarter: 2012Q4

REPORT INFORMATION
  Report Type: 
  Country: US (occurrence: US)
  Receive Date: 20121211
  Receipt Date: 20121211
  Transmission Date: 20130627
  Serious: Yes (Hospitalization)
  Sender: FDA-Public Use
  Company Number: US-BAYER-2012-129107

PATIENT
  Age: 16 Year
  Sex: Female
  Weight: 55.78 kg

DRUGS (12)
  1. YAZ [Suspect]
  2. YASMIN [Suspect]
  3. OCELLA [Suspect]
  4. FOCALIN [Concomitant]
     Dosage: 20 mg, In morning, school days
  5. RITALIN [Concomitant]
     Dosage: 5 mg, daily weekdays
  6. RITALIN [Concomitant]
     Dosage: 10 mg, weekend days
  7. ALBUTEROL [Concomitant]
  8. VITAMIN D NOS [Concomitant]
  9. B-50 COMPLEX [Concomitant]
  10. FISH OIL [Concomitant]
  11. PROBIOTICS [Concomitant]
  12. MULTIVITAMIN [Concomitant]

REACTIONS (2)
  - Pulmonary embolism [Recovered/Resolved]
  - Deep vein thrombosis [Recovered/Resolved]
